FAERS Safety Report 7217266-5 (Version None)
Quarter: 2011Q1

REPORT INFORMATION
  Report Type: 
  Country: None (occurrence: None)
  Receive Date: 20110110
  Receipt Date: 20101221
  Transmission Date: 20110831
  Serious: No
  Sender: FDA-Public Use
  Company Number: US-B.I. PHARMACEUTICALS,INC./RIDGEFIELD-2010-BP-15273BP

PATIENT
  Sex: Female

DRUGS (11)
  1. PRADAXA [Suspect]
     Indication: ATRIAL FIBRILLATION
     Dosage: 300 MG
     Route: 048
     Dates: start: 20101217
  2. DIOVAN [Concomitant]
     Indication: HYPERTENSION
  3. JANUVIA [Concomitant]
     Indication: DIABETES MELLITUS
  4. GLIMEPIRIDE [Concomitant]
     Indication: DIABETES MELLITUS
  5. METOPROLOL TARTRATE [Concomitant]
     Indication: HYPERTENSION
  6. CRESTOR [Concomitant]
     Indication: BLOOD CHOLESTEROL INCREASED
  7. AMITRIPTYLINE [Concomitant]
     Indication: DEPRESSION
  8. CALCIUM [Concomitant]
     Indication: PROPHYLAXIS
  9. FUROSEMIDE [Suspect]
     Indication: HYPERTENSION
     Dates: end: 20101218
  10. MULTIVITAMIN [Concomitant]
     Indication: PROPHYLAXIS
  11. CO Q10 [Concomitant]
     Indication: PROPHYLAXIS

REACTIONS (1)
  - POLLAKIURIA [None]
